FAERS Safety Report 15376517 (Version 1)
Quarter: 2018Q3

REPORT INFORMATION
  Report Type: Spontaneous
  Country: US (occurrence: US)
  Receive Date: 20180912
  Receipt Date: 20180912
  Transmission Date: 20181010
  Serious: Yes (Other)
  Sender: FDA-Public Use
  Company Number: US-009507513-1809USA002694

PATIENT
  Age: 88 Year
  Sex: Female

DRUGS (1)
  1. REMERON [Suspect]
     Active Substance: MIRTAZAPINE
     Dosage: UNK
     Route: 048

REACTIONS (7)
  - Sleep disorder [Unknown]
  - Flashback [Unknown]
  - Altered state of consciousness [Unknown]
  - Hallucination [Unknown]
  - Abnormal behaviour [Unknown]
  - Confusional state [Unknown]
  - Agitation [Unknown]
